FAERS Safety Report 6910027-3 (Version None)
Quarter: 2010Q3

REPORT INFORMATION
  Report Type: 
  Country: None (occurrence: None)
  Receive Date: 20100806
  Receipt Date: 20100730
  Transmission Date: 20110219
  Serious: No
  Sender: FDA-Public Use
  Company Number: 2009BI039571

PATIENT
  Sex: Female
  Weight: 90 kg

DRUGS (3)
  1. TYSABRI [Suspect]
     Indication: MULTIPLE SCLEROSIS
     Route: 042
     Dates: start: 20090821
  2. CLARITIN [Concomitant]
     Indication: PREMEDICATION
  3. UNKNOWN MEDICATION [Concomitant]
     Indication: PREMEDICATION

REACTIONS (8)
  - DERMATITIS ALLERGIC [None]
  - DYSPNOEA [None]
  - MUSCLE SPASMS [None]
  - NAUSEA [None]
  - PAIN IN EXTREMITY [None]
  - PARAESTHESIA [None]
  - RASH GENERALISED [None]
  - THROAT TIGHTNESS [None]
